FAERS Safety Report 23207926 (Version 1)
Quarter: 2023Q4

REPORT INFORMATION
  Report Type: Spontaneous
  Country: GB (occurrence: GB)
  Receive Date: 20231121
  Receipt Date: 20231121
  Transmission Date: 20240110
  Serious: Yes (Life-Threatening)
  Sender: FDA-Public Use
  Company Number: GB-MHRA-MED-202311101013570010-QRCVK

PATIENT
  Age: 71 Year
  Sex: Male

DRUGS (2)
  1. AMIODARONE [Suspect]
     Active Substance: AMIODARONE
     Indication: Cardiac ablation
     Dosage: UNK
     Route: 065
     Dates: start: 20220901, end: 20230528
  2. APIXABAN [Concomitant]
     Active Substance: APIXABAN
     Indication: Adverse drug reaction
     Dosage: UNK
     Route: 065

REACTIONS (2)
  - Brief resolved unexplained event [Recovered/Resolved with Sequelae]
  - Medication error [Unknown]

NARRATIVE: CASE EVENT DATE: 20230528
